FAERS Safety Report 8847333 (Version 1)
Quarter: 2012Q4

REPORT INFORMATION
  Report Type: 
  Country: US (occurrence: US)
  Receive Date: 20121018
  Receipt Date: 20121018
  Transmission Date: 20130627
  Serious: Yes (Death)
  Sender: FDA-Public Use
  Company Number: US-ROXANE LABORATORIES, INC.-2012-EU-05190GD

PATIENT
  Age: 45 Year
  Sex: Male

DRUGS (8)
  1. OXAZEPAM [Suspect]
  2. IBOGAINE [Suspect]
     Indication: DRUG DETOXIFICATION
     Dosage: 22 mg/kg
  3. FENTANYL [Suspect]
  4. DIAZEPAM [Suspect]
  5. TEMAZEPAM [Suspect]
  6. OXYCODONE [Suspect]
  7. ALPRAZOLAM [Suspect]
  8. EPHEDRINE [Suspect]

REACTIONS (1)
  - Toxicity to various agents [Fatal]
